FAERS Safety Report 4435235-5 (Version None)
Quarter: 2004Q3

REPORT INFORMATION
  Report Type: 
  Country: None (occurrence: None)
  Receive Date: 20040827
  Receipt Date: 20040802
  Transmission Date: 20050211
  Serious: Yes (Hospitalization)
  Sender: FDA-Public Use
  Company Number: FI-GLAXOSMITHKLINE-B0341463A

PATIENT
  Age: 44 Year
  Sex: Male

DRUGS (3)
  1. AUGMENTIN '125' [Suspect]
     Indication: POSTOPERATIVE INFECTION
     Dosage: 875MG TWICE PER DAY
     Route: 048
     Dates: start: 20020417, end: 20020514
  2. KEFEXIN [Concomitant]
     Indication: POSTOPERATIVE INFECTION
  3. BURANA [Concomitant]
     Indication: PAIN

REACTIONS (11)
  - ABDOMINAL PAIN [None]
  - ALANINE AMINOTRANSFERASE INCREASED [None]
  - ASPARTATE AMINOTRANSFERASE INCREASED [None]
  - BLOOD ALKALINE PHOSPHATASE INCREASED [None]
  - BLOOD BILIRUBIN INCREASED [None]
  - CHROMATURIA [None]
  - CHRONIC HEPATITIS [None]
  - JAUNDICE [None]
  - NAUSEA [None]
  - PRURITUS [None]
  - VOMITING [None]
